FAERS Safety Report 15651314 (Version 1)
Quarter: 2018Q4

REPORT INFORMATION
  Report Type: Spontaneous
  Country: NO (occurrence: NO)
  Receive Date: 20181123
  Receipt Date: 20181123
  Transmission Date: 20190205
  Serious: Yes (Hospitalization)
  Sender: FDA-Public Use
  Company Number: NO-GLAXOSMITHKLINE-NO2018211325

PATIENT
  Age: 15 Year
  Sex: Male

DRUGS (2)
  1. SCOPODERM TTS [Suspect]
     Active Substance: SCOPOLAMINE
     Indication: MOTION SICKNESS
     Dosage: 1 MG, UNK
     Route: 062
     Dates: start: 20181005, end: 20181013
  2. MINIRIN [Concomitant]
     Active Substance: DESMOPRESSIN ACETATE
     Indication: ENURESIS
     Dosage: UNK
     Route: 065

REACTIONS (10)
  - Vomiting [Recovering/Resolving]
  - Abnormal behaviour [Recovering/Resolving]
  - Visual impairment [Recovering/Resolving]
  - Headache [Recovering/Resolving]
  - Dizziness exertional [Recovering/Resolving]
  - Disorganised speech [Recovering/Resolving]
  - Amnesia [Recovering/Resolving]
  - Dizziness postural [Recovering/Resolving]
  - Nausea [Recovering/Resolving]
  - Disturbance in attention [Recovering/Resolving]

NARRATIVE: CASE EVENT DATE: 201810
